FAERS Safety Report 25359222 (Version 1)
Quarter: 2025Q2

REPORT INFORMATION
  Report Type: Report from Study
  Country: US (occurrence: US)
  Receive Date: 20250526
  Receipt Date: 20250526
  Transmission Date: 20250716
  Serious: Yes (Hospitalization)
  Sender: MALLINCKRODT
  Company Number: US-MALLINCKRODT-MNK202501606

PATIENT
  Sex: Female

DRUGS (1)
  1. CORTICOTROPIN [Suspect]
     Active Substance: CORTICOTROPIN
     Indication: Systemic lupus erythematosus
     Dosage: 80 UNITS
     Dates: start: 20241227

REACTIONS (4)
  - Abscess drainage [Unknown]
  - Fear [Unknown]
  - Stress [Unknown]
  - Product dose omission issue [Unknown]
